FAERS Safety Report 5244119-4 (Version None)
Quarter: 2007Q1

REPORT INFORMATION
  Report Type: 
  Country: None (occurrence: None)
  Receive Date: 20070222
  Receipt Date: 20070213
  Transmission Date: 20070707
  Serious: Yes (Other)
  Sender: FDA-Public Use
  Company Number: NL-BRISTOL-MYERS SQUIBB COMPANY-13680764

PATIENT
  Age: 76 Year
  Sex: Male

DRUGS (1)
  1. AMPHOTERICIN B [Suspect]
     Indication: CANDIDIASIS
     Route: 042

REACTIONS (2)
  - BONE MARROW FAILURE [None]
  - NEPHROGENIC DIABETES INSIPIDUS [None]
